FAERS Safety Report 25244048 (Version 1)
Quarter: 2025Q2

REPORT INFORMATION
  Report Type: Spontaneous
  Country: CO (occurrence: CO)
  Receive Date: 20250428
  Receipt Date: 20250428
  Transmission Date: 20250716
  Serious: Yes (Hospitalization)
  Sender: BOEHRINGER INGELHEIM
  Company Number: CO-BoehringerIngelheim-2025-BI-023367

PATIENT
  Sex: Male
  Weight: 77 kg

DRUGS (1)
  1. OFEV [Suspect]
     Active Substance: NINTEDANIB
     Indication: Pulmonary fibrosis
     Dates: start: 202502

REACTIONS (2)
  - Pulmonary fibrosis [Unknown]
  - Disease complication [Unknown]

NARRATIVE: CASE EVENT DATE: 20250401
